FAERS Safety Report 6485711-9 (Version None)
Quarter: 2009Q4

REPORT INFORMATION
  Report Type: 
  Country: None (occurrence: None)
  Receive Date: 20091209
  Receipt Date: 20090707
  Transmission Date: 20100525
  Serious: No
  Sender: FDA-Public Use
  Company Number: US-AMGEN-KDL354790

PATIENT
  Sex: Male

DRUGS (3)
  1. ENBREL [Suspect]
     Indication: ANKYLOSING SPONDYLITIS
     Route: 058
     Dates: start: 20080315
  2. SULFASALAZINE [Concomitant]
     Dates: start: 20070401
  3. METHOTREXATE [Concomitant]
     Route: 048
     Dates: start: 20070401

REACTIONS (4)
  - IMPAIRED HEALING [None]
  - SINUS OPERATION [None]
  - SINUSITIS [None]
  - TONSILLECTOMY [None]
